FAERS Safety Report 24359812 (Version 2)
Quarter: 2024Q4

REPORT INFORMATION
  Report Type: Spontaneous
  Country: JP (occurrence: JP)
  Receive Date: 20240924
  Receipt Date: 20241112
  Transmission Date: 20250115
  Serious: Yes (Hospitalization, Other)
  Sender: SANOFI AVENTIS
  Company Number: JP-SAKK-2024SA127268AA

PATIENT
  Age: 78 Year
  Sex: Female
  Weight: 37 kg

DRUGS (8)
  1. KEVZARA [Suspect]
     Active Substance: SARILUMAB
     Indication: Rheumatoid arthritis
     Dosage: 200 MG, QOW
     Route: 058
     Dates: start: 20190218, end: 20240304
  2. SULFASALAZINE [Concomitant]
     Active Substance: SULFASALAZINE
     Indication: Rheumatoid arthritis
     Dosage: 500 MG, BID
     Route: 048
     Dates: start: 20171227
  3. LOXOPROFEN SODIUM DIHYDRATE [Concomitant]
     Active Substance: LOXOPROFEN SODIUM DIHYDRATE
     Indication: Rheumatoid arthritis
     Dosage: 60 MG, BID
     Route: 048
     Dates: end: 20240314
  4. VONOPRAZAN FUMARATE [Concomitant]
     Active Substance: VONOPRAZAN FUMARATE
     Indication: Gastrooesophageal reflux disease
     Dosage: 10 MG, QD
     Route: 048
  5. AMLODIPINE BESYLATE [Concomitant]
     Active Substance: AMLODIPINE BESYLATE
     Indication: Hypertension
     Dosage: 5 MG, QD
     Route: 048
  6. TELMISARTAN [Concomitant]
     Active Substance: TELMISARTAN
     Indication: Hypertension
     Dosage: 20 MG, QD
     Route: 048
  7. IOPROMIDE [Concomitant]
     Active Substance: IOPROMIDE
     Indication: Scan with contrast
     Dosage: 84 ML
     Route: 065
     Dates: start: 20240313
  8. SODIUM CHLORIDE [Concomitant]
     Active Substance: SODIUM CHLORIDE
     Indication: Scan with contrast
     Dosage: 40 ML
     Route: 065
     Dates: start: 20240313

REACTIONS (12)
  - Renal infarct [Unknown]
  - Staphylococcal bacteraemia [Unknown]
  - Arthritis bacterial [Recovering/Resolving]
  - Arthralgia [Recovering/Resolving]
  - Movement disorder [Recovering/Resolving]
  - Lymphadenopathy [Recovering/Resolving]
  - Pelvic abscess [Recovering/Resolving]
  - Osteomyelitis [Unknown]
  - Interstitial lung disease [Unknown]
  - Pleural effusion [Unknown]
  - Joint abscess [Unknown]
  - Lymphangioma [Unknown]

NARRATIVE: CASE EVENT DATE: 20240304
